FAERS Safety Report 10016955 (Version 1)
Quarter: 2014Q1

REPORT INFORMATION
  Report Type: Spontaneous
  Country: US (occurrence: US)
  Receive Date: 20140318
  Receipt Date: 20140318
  Transmission Date: 20141002
  Serious: No
  Sender: FDA-Public Use
  Company Number: US-BIOGENIDEC-2014BI024178

PATIENT
  Age: 35 Year
  Sex: Female

DRUGS (1)
  1. TYSABRI [Suspect]
     Indication: MULTIPLE SCLEROSIS
     Route: 042
     Dates: start: 20120413

REACTIONS (4)
  - Optic neuritis [Recovered/Resolved]
  - Vitamin D decreased [Recovered/Resolved]
  - Musculoskeletal stiffness [Recovered/Resolved]
  - Blepharospasm [Recovered/Resolved]
